FAERS Safety Report 13613104 (Version 1)
Quarter: 2017Q2

REPORT INFORMATION
  Report Type: Spontaneous
  Country: IE (occurrence: IE)
  Receive Date: 20170605
  Receipt Date: 20170605
  Transmission Date: 20170830
  Serious: Yes (Hospitalization)
  Sender: FDA-Public Use
  Company Number: IE-SA-2017SA099254

PATIENT
  Sex: Female
  Weight: 1.72 kg

DRUGS (9)
  1. APIDRA [Suspect]
     Active Substance: INSULIN GLULISINE
     Indication: FOETAL EXPOSURE DURING PREGNANCY
     Dosage: DOSE: 1:9, 1:9, 1:9
     Route: 064
     Dates: start: 20160722
  2. LANTUS [Suspect]
     Active Substance: INSULIN GLARGINE
     Indication: FOETAL EXPOSURE DURING PREGNANCY
     Route: 064
     Dates: start: 200610
  3. LANTUS [Suspect]
     Active Substance: INSULIN GLARGINE
     Indication: FOETAL EXPOSURE DURING PREGNANCY
     Route: 064
     Dates: start: 20161028
  4. LANTUS [Suspect]
     Active Substance: INSULIN GLARGINE
     Indication: FOETAL EXPOSURE DURING PREGNANCY
     Route: 064
  5. LANTUS [Suspect]
     Active Substance: INSULIN GLARGINE
     Indication: FOETAL EXPOSURE DURING PREGNANCY
     Route: 064
     Dates: start: 20160708
  6. APIDRA [Suspect]
     Active Substance: INSULIN GLULISINE
     Indication: FOETAL EXPOSURE DURING PREGNANCY
     Dosage: DOSE: 1:10, 1:10, 1:10
     Route: 064
  7. APIDRA [Suspect]
     Active Substance: INSULIN GLULISINE
     Indication: FOETAL EXPOSURE DURING PREGNANCY
     Route: 064
     Dates: start: 20161007
  8. LANTUS [Suspect]
     Active Substance: INSULIN GLARGINE
     Indication: FOETAL EXPOSURE DURING PREGNANCY
     Route: 064
  9. APIDRA [Suspect]
     Active Substance: INSULIN GLULISINE
     Indication: FOETAL EXPOSURE DURING PREGNANCY
     Dosage: DOSE: 1:7, 1:9, 1:9
     Route: 064
     Dates: start: 200610

REACTIONS (3)
  - Low birth weight baby [Unknown]
  - Exposure during breast feeding [Unknown]
  - Foetal exposure during pregnancy [Unknown]

NARRATIVE: CASE EVENT DATE: 20161129
